FAERS Safety Report 14759878 (Version 1)
Quarter: 2018Q2

REPORT INFORMATION
  Report Type: Spontaneous
  Country: FI (occurrence: FI)
  Receive Date: 20180413
  Receipt Date: 20180413
  Transmission Date: 20180711
  Serious: Yes (Other)
  Sender: FDA-Public Use
  Company Number: FI-TEVA-2018-FI-880659

PATIENT
  Age: 51 Year
  Sex: Female

DRUGS (11)
  1. HERCEPTIN [Suspect]
     Active Substance: TRASTUZUMAB
     Dosage: AS MAINTENANCE THERAPY
     Route: 065
     Dates: start: 201011
  2. DOCETAXEL. [Suspect]
     Active Substance: DOCETAXEL
     Indication: HER-2 POSITIVE BREAST CANCER
     Dosage: AS MAINTENANCE THERAPY, 6 TREATMENTS
     Route: 065
     Dates: start: 201411, end: 201503
  3. HERCEPTIN [Suspect]
     Active Substance: TRASTUZUMAB
     Dosage: AS MAINTENANCE THERAPY
     Route: 065
     Dates: start: 201703
  4. ZOMETA [Concomitant]
     Active Substance: ZOLEDRONIC ACID
     Dosage: AS MAINTENANCE THERAPY
     Route: 065
     Dates: start: 201011, end: 201308
  5. DOCETAXEL. [Suspect]
     Active Substance: DOCETAXEL
     Dosage: AS 1ST LINE TREATMENT, 9 CYCLES
     Route: 065
     Dates: start: 2010
  6. HERCEPTIN [Suspect]
     Active Substance: TRASTUZUMAB
     Dosage: AS MAINTENANCE THERAPY, 6 TREATMENTS
     Route: 065
     Dates: start: 201411, end: 201503
  7. HERCEPTIN [Suspect]
     Active Substance: TRASTUZUMAB
     Indication: HER-2 POSITIVE BREAST CANCER
     Dosage: AS 1ST LINE TREATMENT, 9 CYCLES
     Route: 065
     Dates: start: 2010
  8. XGEVA [Concomitant]
     Active Substance: DENOSUMAB
     Indication: HER-2 POSITIVE BREAST CANCER
     Route: 065
     Dates: start: 201308
  9. ZOMETA [Concomitant]
     Active Substance: ZOLEDRONIC ACID
     Indication: HER-2 POSITIVE BREAST CANCER
     Dosage: AS 1ST LINE TREATMENT, 9 CYCLES
     Route: 065
     Dates: start: 2010
  10. XGEVA [Concomitant]
     Active Substance: DENOSUMAB
     Dosage: AS MAINTENANCE THERAPY, 6 TREATMENTS
     Route: 065
     Dates: start: 201411, end: 201503
  11. KADCYLA [Suspect]
     Active Substance: ADO-TRASTUZUMAB EMTANSINE
     Indication: HER-2 POSITIVE BREAST CANCER
     Dosage: AS 2ND LINE TREATMENT
     Dates: start: 2015

REACTIONS (13)
  - Telangiectasia [Unknown]
  - Muscle spasms [Unknown]
  - Septic shock [Unknown]
  - Neuropathy peripheral [Recovered/Resolved]
  - Erysipelas [Unknown]
  - Epistaxis [Unknown]
  - Thrombocytopenia [Unknown]
  - Transaminases increased [Recovering/Resolving]
  - Headache [Recovered/Resolved]
  - Osteoarthritis [Recovered/Resolved]
  - Fatigue [Recovered/Resolved]
  - Haemangioma [Unknown]
  - Muscular weakness [Unknown]

NARRATIVE: CASE EVENT DATE: 2013
